FAERS Safety Report 8550347-2 (Version None)
Quarter: 2012Q3

REPORT INFORMATION
  Report Type: 
  Country: None (occurrence: None)
  Receive Date: 20120730
  Receipt Date: 20120720
  Transmission Date: 20120928
  Serious: Yes (Other)
  Sender: FDA-Public Use
  Company Number: CA-PFIZER INC-2012181427

PATIENT
  Sex: Male

DRUGS (2)
  1. CYMBALTA [Suspect]
     Dosage: UNK
     Route: 065
  2. PANTOPRAZOLE SODIUM [Suspect]
     Dosage: UNK
     Route: 065

REACTIONS (6)
  - URINARY INCONTINENCE [None]
  - MULTIPLE FRACTURES [None]
  - BACK DISORDER [None]
  - COLON NEOPLASM [None]
  - BONE DENSITY ABNORMAL [None]
  - ERECTILE DYSFUNCTION [None]
